FAERS Safety Report 19068913 (Version 1)
Quarter: 2021Q1

REPORT INFORMATION
  Report Type: Spontaneous
  Country: US (occurrence: US)
  Receive Date: 20210329
  Receipt Date: 20210329
  Transmission Date: 20210420
  Serious: Yes (Life-Threatening)
  Sender: FDA-Public Use
  Company Number: None

PATIENT
  Age: 26 Year
  Sex: Female
  Weight: 52.6 kg

DRUGS (2)
  1. FECAL MICROBIOTA TRANSPLANTATION PRODUCT [Suspect]
     Active Substance: FECAL MICROBIOTA
     Indication: GRAFT VERSUS HOST DISEASE
     Dosage: ?          OTHER FREQUENCY:ONCE;OTHER ROUTE:ESOPHAGOGASTRODUODENOSCOPY?
     Dates: start: 20210311, end: 20210311
  2. FECAL MICROBIOTA TRANSPLANTATION PRODUCT [Suspect]
     Active Substance: FECAL MICROBIOTA
     Indication: GRAFT VERSUS HOST DISEASE
     Dosage: ?          OTHER FREQUENCY:ONCE;?
     Route: 054
     Dates: start: 20210311, end: 20210311

REACTIONS (1)
  - Sepsis [None]

NARRATIVE: CASE EVENT DATE: 20210312
